FAERS Safety Report 4600578-9 (Version None)
Quarter: 2005Q1

REPORT INFORMATION
  Report Type: 
  Country: None (occurrence: None)
  Receive Date: 20050304
  Receipt Date: 20050216
  Transmission Date: 20050727
  Serious: Yes (Hospitalization)
  Sender: FDA-Public Use
  Company Number: 2005038230

PATIENT
  Age: 73 Year
  Sex: Female
  Weight: 45 kg

DRUGS (5)
  1. PREDNISONE [Suspect]
     Indication: ILL-DEFINED DISORDER
     Dates: start: 20040908
  2. CYCLOPHOSPHAMIDE [Suspect]
     Indication: ILL-DEFINED DISORDER
     Dates: start: 20040908
  3. DOXORUBICIN HCL [Suspect]
     Indication: ILL-DEFINED DISORDER
     Dates: start: 20040908
  4. VINCRISTINE SULFATE [Suspect]
     Indication: ILL-DEFINED DISORDER
     Dates: start: 20040908
  5. RITUXIMAB (RITUXIMAB) [Suspect]
     Indication: ILL-DEFINED DISORDER
     Dosage: 525 MG, INTRAVENOUS
     Route: 042
     Dates: start: 20040908

REACTIONS (2)
  - FEBRILE NEUTROPENIA [None]
  - FULL BLOOD COUNT ABNORMAL [None]
